FAERS Safety Report 9005939 (Version 1)
Quarter: 2013Q1

REPORT INFORMATION
  Report Type: Spontaneous
  Country: US (occurrence: US)
  Receive Date: 20130109
  Receipt Date: 20130109
  Transmission Date: 20140127
  Serious: No
  Sender: FDA-Public Use
  Company Number: US-PFIZER INC-2013008695

PATIENT
  Age: 83 Year
  Sex: Male
  Weight: 72.56 kg

DRUGS (1)
  1. TOVIAZ [Suspect]
     Indication: POLLAKIURIA
     Dosage: 8 MG, DAILY
     Dates: start: 201212

REACTIONS (2)
  - Drug ineffective [Unknown]
  - Dry mouth [Not Recovered/Not Resolved]
